FAERS Safety Report 9255426 (Version 1)
Quarter: 2013Q2

REPORT INFORMATION
  Report Type: Spontaneous
  Country: US (occurrence: US)
  Receive Date: 20130425
  Receipt Date: 20130425
  Transmission Date: 20140414
  Serious: Yes (Other)
  Sender: FDA-Public Use
  Company Number: US-BRISTOL-MYERS SQUIBB COMPANY-17329319

PATIENT
  Age: 77 Year
  Sex: Male

DRUGS (2)
  1. HYDREA [Suspect]
     Indication: LEUKOCYTOSIS
     Dosage: HELD FOR 1 WK, RESTD AS 500MG/DAILY
     Route: 048
     Dates: start: 20120710
  2. JAKAFI [Suspect]
     Indication: MYELOFIBROSIS
     Dosage: TABS
     Route: 048
     Dates: start: 20120314

REACTIONS (1)
  - Platelet count decreased [Recovering/Resolving]
